FAERS Safety Report 6671393-X (Version None)
Quarter: 2010Q2

REPORT INFORMATION
  Report Type: 
  Country: None (occurrence: None)
  Receive Date: 20100407
  Receipt Date: 20100331
  Transmission Date: 20101027
  Serious: Yes (Hospitalization)
  Sender: FDA-Public Use
  Company Number: B0644316A

PATIENT
  Age: 66 Year
  Sex: Female
  Weight: 92.1 kg

DRUGS (4)
  1. AVANDAMET [Suspect]
     Dosage: 4MG PER DAY
     Route: 048
     Dates: start: 20011001, end: 20100301
  2. GLICLAZIDE [Concomitant]
     Route: 048
  3. SIMVASTATIN [Concomitant]
     Route: 048
  4. METFORMIN [Concomitant]
     Route: 048

REACTIONS (3)
  - ANKLE FRACTURE [None]
  - FALL [None]
  - WRIST FRACTURE [None]
